FAERS Safety Report 5600780-3 (Version None)
Quarter: 2008Q1

REPORT INFORMATION
  Report Type: 
  Country: None (occurrence: None)
  Receive Date: 20080123
  Receipt Date: 20080111
  Transmission Date: 20080703
  Serious: Yes (Hospitalization, Other)
  Sender: FDA-Public Use
  Company Number: US-PFIZER INC-2007017512

PATIENT
  Sex: Male
  Weight: 72.6 kg

DRUGS (9)
  1. LYRICA [Suspect]
     Indication: PAIN
     Route: 048
     Dates: start: 20060728, end: 20060801
  2. LYRICA [Suspect]
     Indication: GOUT
  3. LYRICA [Suspect]
     Indication: NEURALGIA
  4. LYRICA [Suspect]
     Indication: ARTHRALGIA
  5. PRAVACHOL [Concomitant]
  6. ANTIBIOTICS [Concomitant]
  7. ALL OTHER THERAPEUTIC PRODUCTS [Concomitant]
  8. CALCIUM GLUCONATE [Concomitant]
  9. LASIX [Concomitant]

REACTIONS (16)
  - ABASIA [None]
  - ARTHRALGIA [None]
  - CATARACT [None]
  - CONDITION AGGRAVATED [None]
  - CONFUSIONAL STATE [None]
  - DRY MOUTH [None]
  - DYSARTHRIA [None]
  - GLAUCOMA [None]
  - INFECTION [None]
  - MUSCULAR WEAKNESS [None]
  - OSTEOMYELITIS [None]
  - PERIPHERAL NERVE DESTRUCTION [None]
  - SPINAL ANAESTHESIA [None]
  - STAPHYLOCOCCAL INFECTION [None]
  - SWELLING [None]
  - VISION BLURRED [None]
